FAERS Safety Report 10103356 (Version 1)
Quarter: 2014Q2

REPORT INFORMATION
  Report Type: Spontaneous
  Country: US (occurrence: US)
  Receive Date: 20140424
  Receipt Date: 20140424
  Transmission Date: 20141212
  Serious: No
  Sender: FDA-Public Use
  Company Number: US-BRISTOL-MYERS SQUIBB COMPANY-20335774

PATIENT
  Age: 92 Year
  Sex: Female
  Weight: 54.42 kg

DRUGS (1)
  1. ELIQUIS [Suspect]
     Indication: ATRIAL FIBRILLATION
     Dosage: STARTED ON FEBRUARY 6TH

REACTIONS (4)
  - Rash macular [Unknown]
  - Peripheral swelling [Unknown]
  - Headache [Unknown]
  - Dizziness [Unknown]
